FAERS Safety Report 8612199-1 (Version None)
Quarter: 2012Q3

REPORT INFORMATION
  Report Type: 
  Country: None (occurrence: None)
  Receive Date: 20120822
  Receipt Date: 20120820
  Transmission Date: 20120928
  Serious: Yes (Other)
  Sender: FDA-Public Use
  Company Number: US-PFIZER INC-2012185751

PATIENT
  Age: 62 Year
  Sex: Female
  Weight: 72.562 kg

DRUGS (13)
  1. VITAMIN D [Concomitant]
     Dosage: UNK
  2. LYRICA [Suspect]
     Dosage: 75 MG, 2X/DAY
     Route: 048
  3. LYRICA [Suspect]
     Indication: FIBROMYALGIA
     Dosage: UNK MG, UNK
     Route: 048
     Dates: start: 20110101
  4. LIPITOR [Concomitant]
     Dosage: 10 MG, UNK
     Route: 048
  5. SAVELLA [Concomitant]
     Indication: FIBROMYALGIA
     Dosage: 50 MG, 2X/DAY
     Route: 048
  6. CYMBALTA [Concomitant]
     Dosage: UNK
  7. AMBIEN CR [Concomitant]
     Indication: SLEEP APNOEA SYNDROME
     Dosage: 6.25 MG, UNK
     Route: 048
  8. PROMETRIUM [Concomitant]
     Indication: ENDOCRINE DISORDER
     Dosage: UNK
  9. LYRICA [Suspect]
     Dosage: UNK
     Route: 048
  10. LIPITOR [Concomitant]
     Indication: BLOOD CHOLESTEROL INCREASED
     Dosage: 20 MG, UNK
     Route: 048
  11. TRAZODONE [Concomitant]
     Indication: SLEEP APNOEA SYNDROME
     Dosage: 50 MG, UNK
  12. MELOXICAM [Concomitant]
     Indication: EXOSTOSIS
     Dosage: UNK
  13. ELESTRIN GEL [Concomitant]
     Indication: ENDOCRINE DISORDER
     Dosage: UNK, AT NIGHT

REACTIONS (11)
  - ARTHRALGIA [None]
  - BLEPHAROSPASM [None]
  - HEADACHE [None]
  - PARAESTHESIA [None]
  - NASAL MUCOSAL DISORDER [None]
  - FACIAL PAIN [None]
  - WEIGHT INCREASED [None]
  - EYE PAIN [None]
  - COUGH [None]
  - LIBIDO INCREASED [None]
  - DRUG INEFFECTIVE [None]
